FAERS Safety Report 20490046 (Version 1)
Quarter: 2022Q1

REPORT INFORMATION
  Report Type: Spontaneous
  Country: US (occurrence: US)
  Receive Date: 20220218
  Receipt Date: 20220218
  Transmission Date: 20220423
  Serious: Yes (Other)
  Sender: FDA-Public Use
  Company Number: US-GLAXOSMITHKLINE-US2022GSK027019

PATIENT
  Sex: Female

DRUGS (4)
  1. ZANTAC [Suspect]
     Active Substance: RANITIDINE HYDROCHLORIDE
     Indication: Dyspepsia
     Dosage: 200 MG, QD
     Route: 065
     Dates: start: 200001, end: 202005
  2. ZANTAC [Suspect]
     Active Substance: RANITIDINE HYDROCHLORIDE
     Indication: Dyspepsia
     Dosage: 200 MG, QD
     Route: 065
     Dates: start: 200001, end: 202005
  3. RANITIDINE [Suspect]
     Active Substance: RANITIDINE
     Indication: Dyspepsia
     Dosage: 200 MG, QD
     Route: 065
     Dates: start: 200001, end: 202005
  4. RANITIDINE [Suspect]
     Active Substance: RANITIDINE
     Indication: Dyspepsia
     Dosage: 200 MG, QD
     Route: 065
     Dates: start: 200001, end: 202005

REACTIONS (3)
  - Colorectal cancer [Unknown]
  - Renal cancer [Unknown]
  - Hepatic cancer [Unknown]
